FAERS Safety Report 5001607-3 (Version None)
Quarter: 2006Q2

REPORT INFORMATION
  Report Type: 
  Country: None (occurrence: None)
  Receive Date: 20060511
  Receipt Date: 20060511
  Transmission Date: 20061013
  Serious: No
  Sender: FDA-Public Use
  Company Number: None

PATIENT
  Sex: Female
  Weight: 74 kg

DRUGS (5)
  1. MIDAZOLAM HCL [Suspect]
     Indication: THERAPEUTIC PROCEDURE
     Dosage: 2MG ONCE IV BOLUS
     Route: 040
  2. DIAZEPAM [Concomitant]
  3. DIPHENHYDRAMINE HCL [Concomitant]
  4. LIDOCAINE [Concomitant]
  5. MORPHINE [Concomitant]

REACTIONS (2)
  - ERYTHEMA [None]
  - URTICARIA [None]
